FAERS Safety Report 21463466 (Version 4)
Quarter: 2022Q4

REPORT INFORMATION
  Report Type: Report from Study
  Country: US (occurrence: US)
  Receive Date: 20221017
  Receipt Date: 20221214
  Transmission Date: 20230112
  Serious: Yes (Other)
  Sender: FDA-Public Use
  Company Number: US-ABBVIE-22K-163-4470296-00

PATIENT
  Sex: Female
  Weight: 58.966 kg

DRUGS (9)
  1. IMBRUVICA [Suspect]
     Active Substance: IBRUTINIB
     Indication: Chronic lymphocytic leukaemia
     Dosage: FORM STRENGTH: 420 MILLIGRAM/ END DATE 2022
     Route: 048
     Dates: start: 20220707
  2. IMBRUVICA [Suspect]
     Active Substance: IBRUTINIB
     Indication: Chronic lymphocytic leukaemia
     Dosage: FORM STRENGTH: 420 MILLIGRAM/END DATE 2022
     Route: 048
     Dates: start: 20221004
  3. IMBRUVICA [Suspect]
     Active Substance: IBRUTINIB
     Indication: Chronic lymphocytic leukaemia
     Dosage: FORM STRENGTH: 420 MILLIGRAM/START DATE 2022
     Route: 048
  4. MODERNA COVID-19 VACCINE [Suspect]
     Active Substance: ELASOMERAN
     Indication: COVID-19 immunisation
     Dosage: BOOSTER DOSE?FREQUENCY: ONCE
     Route: 030
     Dates: start: 20211208, end: 20211208
  5. MODERNA COVID-19 VACCINE [Suspect]
     Active Substance: ELASOMERAN
     Indication: COVID-19 immunisation
     Dosage: BOOSTER DOSE?FREQUENCY: ONCE
     Route: 030
  6. PFIZER-BIONTECH COVID-19 VACCINE [Concomitant]
     Active Substance: TOZINAMERAN
     Indication: COVID-19 immunisation
     Dosage: 1ST DOSE?FREQUENCY: ONCE
     Route: 030
     Dates: start: 20210210, end: 20210210
  7. PFIZER-BIONTECH COVID-19 VACCINE [Concomitant]
     Active Substance: TOZINAMERAN
     Indication: COVID-19 immunisation
     Dosage: 2ND DOSE?FREQUENCY: ONCE
     Route: 030
     Dates: start: 20210302, end: 20210302
  8. OCTAGAM IMMUNE GLOBULIN (HUMAN) [Concomitant]
     Active Substance: HUMAN IMMUNOGLOBULIN G
     Indication: Product used for unknown indication
  9. ZYRTEC [Concomitant]
     Active Substance: CETIRIZINE HYDROCHLORIDE
     Indication: Nasal congestion
     Route: 065

REACTIONS (69)
  - Sinusitis [Unknown]
  - Balance disorder [Unknown]
  - Gastrooesophageal reflux disease [Not Recovered/Not Resolved]
  - Tremor [Unknown]
  - Poor quality sleep [Not Recovered/Not Resolved]
  - Dry mouth [Unknown]
  - Oral mucosal blistering [Unknown]
  - Lip dry [Unknown]
  - Oral discomfort [Not Recovered/Not Resolved]
  - Abdominal distension [Unknown]
  - Mouth swelling [Not Recovered/Not Resolved]
  - Haemoglobin decreased [Not Recovered/Not Resolved]
  - Oral mucosal roughening [Not Recovered/Not Resolved]
  - Faeces discoloured [Not Recovered/Not Resolved]
  - Leukoplakia oral [Not Recovered/Not Resolved]
  - Abdominal pain upper [Not Recovered/Not Resolved]
  - Lymphadenopathy [Not Recovered/Not Resolved]
  - Mucosal disorder [Not Recovered/Not Resolved]
  - Malaise [Unknown]
  - Blood immunoglobulin G increased [Unknown]
  - Full blood count decreased [Unknown]
  - Lip swelling [Unknown]
  - Candida infection [Not Recovered/Not Resolved]
  - Gingival erythema [Unknown]
  - Routine health maintenance [Unknown]
  - Abdominal pain [Unknown]
  - Respiratory tract congestion [Unknown]
  - Cardiac murmur [Recovering/Resolving]
  - Malaise [Not Recovered/Not Resolved]
  - Constipation [Not Recovered/Not Resolved]
  - Blood immunoglobulin G decreased [Unknown]
  - Weight increased [Not Recovered/Not Resolved]
  - Muscle spasms [Unknown]
  - Illness [Unknown]
  - Nasal congestion [Unknown]
  - Feeling abnormal [Not Recovered/Not Resolved]
  - Eye haemorrhage [Unknown]
  - Oral pain [Unknown]
  - Protein total decreased [Unknown]
  - Ear discomfort [Unknown]
  - Dizziness [Recovered/Resolved]
  - Muscular weakness [Unknown]
  - Irritability [Not Recovered/Not Resolved]
  - Fatigue [Not Recovered/Not Resolved]
  - Rash [Unknown]
  - Dizziness [Unknown]
  - Stomatitis [Recovering/Resolving]
  - Diarrhoea [Unknown]
  - Oral candidiasis [Unknown]
  - Flatulence [Unknown]
  - Pain [Not Recovered/Not Resolved]
  - Headache [Not Recovered/Not Resolved]
  - Haemoglobin decreased [Recovering/Resolving]
  - Red blood cell count decreased [Not Recovered/Not Resolved]
  - Cheilitis [Recovering/Resolving]
  - Pain in extremity [Not Recovered/Not Resolved]
  - Bone pain [Not Recovered/Not Resolved]
  - Arthralgia [Not Recovered/Not Resolved]
  - Back pain [Unknown]
  - Pruritus [Unknown]
  - Asthenia [Unknown]
  - Stomatitis [Not Recovered/Not Resolved]
  - White blood cell count decreased [Unknown]
  - Platelet count decreased [Unknown]
  - Pain [Not Recovered/Not Resolved]
  - Laboratory test abnormal [Recovering/Resolving]
  - Immunisation reaction [Unknown]
  - Cough [Unknown]
  - Sensory disturbance [Unknown]

NARRATIVE: CASE EVENT DATE: 20220101
